FAERS Safety Report 8914592 (Version 2)
Quarter: 2012Q4

REPORT INFORMATION
  Report Type: 
  Country: JP (occurrence: JP)
  Receive Date: 20121119
  Receipt Date: 20121203
  Transmission Date: 20130627
  Serious: Yes (Hospitalization, Other)
  Sender: FDA-Public Use
  Company Number: JP-NOVOPROD-364072

PATIENT
  Age: 71 Year
  Sex: Male
  Weight: 61.4 kg

DRUGS (6)
  1. VICTOZA HIKACHU INJECTION [Suspect]
     Indication: TYPE 2 DIABETES MELLITUS
     Dosage: 0.3 mg, qd
     Route: 058
     Dates: start: 20110811
  2. VICTOZA HIKACHU INJECTION [Suspect]
     Dosage: 0.6 mg, qd
     Route: 058
     Dates: start: 20110817, end: 20110822
  3. AMARYL [Concomitant]
     Indication: TYPE 2 DIABETES MELLITUS
     Dosage: 0.5 mg, qd
     Route: 048
     Dates: start: 2007
  4. BAYASPIRIN [Concomitant]
     Indication: CEREBRAL INFARCTION
     Dosage: 100 mg, qd
     Route: 048
     Dates: start: 2010
  5. BLOPRESS [Concomitant]
     Indication: HYPERTENSION
     Dosage: 8 mg, qd
     Route: 048
     Dates: start: 2010, end: 201211
  6. LIVALO [Concomitant]
     Indication: HYPERCHOLESTEROLAEMIA
     Dosage: 2 mg, qd
     Route: 048
     Dates: start: 2010, end: 201109

REACTIONS (1)
  - Colitis ischaemic [Recovering/Resolving]
